FAERS Safety Report 8803226 (Version 2)
Quarter: 2012Q4

REPORT INFORMATION
  Report Type: 
  Country: US (occurrence: US)
  Receive Date: 20120924
  Receipt Date: 20121102
  Transmission Date: 20130627
  Serious: Yes (Life-Threatening, Hospitalization)
  Sender: FDA-Public Use
  Company Number: US-JNJFOC-20120905493

PATIENT
  Sex: Female
  Weight: 69.85 kg

DRUGS (12)
  1. REMICADE [Suspect]
     Indication: RHEUMATOID ARTHRITIS
     Route: 042
     Dates: start: 20111115
  2. REMICADE [Suspect]
     Indication: RHEUMATOID ARTHRITIS
     Route: 042
     Dates: start: 20120314
  3. REMICADE [Suspect]
     Indication: RHEUMATOID ARTHRITIS
     Route: 042
     Dates: start: 20120523
  4. REMICADE [Suspect]
     Indication: RHEUMATOID ARTHRITIS
     Route: 042
     Dates: start: 20120703, end: 20120828
  5. REMICADE [Suspect]
     Indication: RHEUMATOID ARTHRITIS
     Route: 042
     Dates: start: 2011
  6. PREDNISONE [Concomitant]
     Indication: SWELLING
     Route: 065
  7. MORPHINE [Concomitant]
     Indication: PAIN
     Route: 065
  8. NEURONTIN [Concomitant]
     Indication: PAIN
     Route: 065
  9. IVERSAL [Concomitant]
     Indication: PAIN
     Route: 065
  10. GLIMEPIRIDE [Concomitant]
     Indication: DIABETES MELLITUS
     Route: 065
  11. CELEBREX [Concomitant]
     Indication: PAIN
     Route: 065
  12. ALIGN NOS [Concomitant]
     Indication: IRRITABLE BOWEL SYNDROME
     Route: 065

REACTIONS (4)
  - Anal fistula [Unknown]
  - Anaphylactic reaction [Recovered/Resolved with Sequelae]
  - Cardiac arrest [Recovered/Resolved]
  - Infusion related reaction [Recovered/Resolved with Sequelae]
